FAERS Safety Report 4355756-3 (Version None)
Quarter: 2004Q2

REPORT INFORMATION
  Report Type: 
  Country: None (occurrence: None)
  Receive Date: 20040511
  Receipt Date: 20040430
  Transmission Date: 20050107
  Serious: Yes (Death)
  Sender: FDA-Public Use
  Company Number: 200414620GDDC

PATIENT
  Age: 60 Year
  Sex: Female
  Weight: 69 kg

DRUGS (2)
  1. TAXOTERE [Suspect]
     Indication: OVARIAN CANCER
     Route: 042
     Dates: start: 20040401, end: 20040401
  2. DELACORT [Concomitant]
     Indication: PREMEDICATION
     Route: 048
     Dates: start: 20040203, end: 20040203

REACTIONS (2)
  - CARDIAC FAILURE [None]
  - CARDIO-RESPIRATORY ARREST [None]
